FAERS Safety Report 6898547-1 (Version None)
Quarter: 2010Q3

REPORT INFORMATION
  Report Type: 
  Country: None (occurrence: None)
  Receive Date: 20100802
  Receipt Date: 20071030
  Transmission Date: 20110219
  Serious: No
  Sender: FDA-Public Use
  Company Number: US-PFIZER INC-2007091062

PATIENT
  Sex: Female
  Weight: 56.4 kg

DRUGS (2)
  1. LYRICA [Suspect]
     Indication: EHLERS-DANLOS SYNDROME
     Dates: start: 20071001
  2. LYRICA [Suspect]
     Indication: PAIN

REACTIONS (2)
  - INSOMNIA [None]
  - UNEVALUABLE EVENT [None]
